FAERS Safety Report 5059446-3 (Version None)
Quarter: 2006Q3

REPORT INFORMATION
  Report Type: 
  Country: None (occurrence: None)
  Receive Date: 20060718
  Receipt Date: 20060705
  Transmission Date: 20061208
  Serious: Yes (Other)
  Sender: FDA-Public Use
  Company Number: 2006073819

PATIENT
  Age: 36 Year
  Sex: Male
  Weight: 60.2 kg

DRUGS (3)
  1. SULPERAZON (SULBACTAM, CEFOPERAZONE) [Suspect]
     Indication: BILIARY TRACT INFECTION
     Dosage: 2 GRAM (1 GRAM, 2 IN 1 D), INTRAVENOUS
     Route: 042
     Dates: start: 20060519, end: 20060522
  2. LOXONIN (LOXOPROFEN SODIUM) [Suspect]
     Indication: PYREXIA
     Dosage: 60 MG (60 MG, AS NEEDED), ORAL
     Route: 048
     Dates: start: 20060519
  3. VOLTAREN [Suspect]
     Indication: PYREXIA
     Dosage: 25 MG (25 MG, AS NEEDED), RECTAL
     Route: 054
     Dates: start: 20060519

REACTIONS (5)
  - DRUG INEFFECTIVE [None]
  - EPSTEIN-BARR VIRUS INFECTION [None]
  - HAEMOLYTIC ANAEMIA [None]
  - IMMUNISATION REACTION [None]
  - INTRA-ABDOMINAL HAEMORRHAGE [None]
